FAERS Safety Report 7992492-6 (Version None)
Quarter: 2011Q4

REPORT INFORMATION
  Report Type: 
  Country: None (occurrence: None)
  Receive Date: 20111219
  Receipt Date: 20111215
  Transmission Date: 20120403
  Serious: Yes (Death, Hospitalization)
  Sender: FDA-Public Use
  Company Number: US-B.I. PHARMACEUTICALS,INC./RIDGEFIELD-2011-BP-27342BP

PATIENT
  Age: 75 Year
  Sex: Female

DRUGS (7)
  1. AMIODARONE HCL [Concomitant]
     Dosage: 200 MG
  2. LASIX [Concomitant]
     Dosage: 40 MG
  3. PRADAXA [Suspect]
     Indication: ATRIAL FIBRILLATION
     Dosage: 300 MG
     Route: 048
  4. GLYBURIDE [Concomitant]
     Dosage: 1000 MG
  5. SYNTHROID [Concomitant]
     Dosage: 100 MG
  6. CRESTOR [Concomitant]
     Dosage: 200 MG
  7. BENICAR [Concomitant]

REACTIONS (2)
  - HEMIPARESIS [None]
  - HAEMORRHAGE INTRACRANIAL [None]
